FAERS Safety Report 11681785 (Version 2)
Quarter: 2015Q4

REPORT INFORMATION
  Report Type: Spontaneous
  Country: IN (occurrence: IN)
  Receive Date: 20151029
  Receipt Date: 20151105
  Transmission Date: 20160304
  Serious: Yes (Hospitalization, Other)
  Sender: FDA-Public Use
  Company Number: IN-WATSON-2015-21865

PATIENT
  Age: 43 Year
  Sex: Female
  Weight: 91.2 kg

DRUGS (5)
  1. ESTRADIOL (WATSON LABORATORIES) [Suspect]
     Active Substance: ESTRADIOL
     Dosage: 6 MG, DAILY
     Route: 048
  2. LOPRIN [Concomitant]
     Indication: PRODUCT USED FOR UNKNOWN INDICATION
     Dosage: 75 MG ONCE DAILY
     Route: 065
  3. LONOPIN                            /01708202/ [Concomitant]
     Indication: PRODUCT USED FOR UNKNOWN INDICATION
     Dosage: UNK
     Route: 065
  4. ESTRADIOL (WATSON LABORATORIES) [Suspect]
     Active Substance: ESTRADIOL
     Indication: HORMONE REPLACEMENT THERAPY
     Dosage: 12 MG, DAILY
     Route: 048
  5. PROGESTERONE (UNKNOWN) [Suspect]
     Active Substance: PROGESTERONE
     Indication: HORMONE REPLACEMENT THERAPY
     Dosage: 400 MG TWICE DAILY
     Route: 065

REACTIONS (1)
  - Deep vein thrombosis [Recovered/Resolved]
